FAERS Safety Report 6636813-5 (Version None)
Quarter: 2010Q1

REPORT INFORMATION
  Report Type: 
  Country: None (occurrence: None)
  Receive Date: 20100316
  Receipt Date: 20100304
  Transmission Date: 20100710
  Serious: Yes (Other)
  Sender: FDA-Public Use
  Company Number: FR-PFIZER INC-2009311319

PATIENT
  Age: 37 Year
  Sex: Female
  Weight: 109 kg

DRUGS (4)
  1. SOLU-MEDROL [Suspect]
     Indication: ASCITES
     Dosage: 1 G, BOLUS
     Route: 040
     Dates: start: 20091019, end: 20091021
  2. SOLU-MEDROL [Suspect]
     Indication: RELAPSING-REMITTING MULTIPLE SCLEROSIS
  3. PROTHIADEN [Suspect]
     Indication: MAJOR DEPRESSION
     Dosage: 25 MG, 1X/DAY
     Route: 048
     Dates: start: 20090701
  4. PROZAC [Suspect]
     Indication: MAJOR DEPRESSION
     Dosage: 1 DF, 1X/DAY
     Dates: start: 20090901, end: 20100213

REACTIONS (3)
  - ALANINE AMINOTRANSFERASE INCREASED [None]
  - ASPARTATE AMINOTRANSFERASE INCREASED [None]
  - GAMMA-GLUTAMYLTRANSFERASE INCREASED [None]
